FAERS Safety Report 9562060 (Version 4)
Quarter: 2022Q1

REPORT INFORMATION
  Report Type: Spontaneous
  Country: RO (occurrence: RO)
  Receive Date: 20130927
  Receipt Date: 20220221
  Transmission Date: 20220424
  Serious: Yes (Hospitalization, Other)
  Sender: FDA-Public Use
  Company Number: RO-SANOFI-AVENTIS-2013SA094920

PATIENT
  Age: 81 Year
  Sex: Female

DRUGS (6)
  1. INDAPAMIDE [Suspect]
     Active Substance: INDAPAMIDE
     Indication: Suicide attempt
     Dosage: UNK
     Route: 048
  2. INDAPAMIDE [Suspect]
     Active Substance: INDAPAMIDE
     Indication: Hypertension
     Dosage: 1.5 MG-16 DF,1X.
     Route: 048
  3. INDAPAMIDE [Suspect]
     Active Substance: INDAPAMIDE
     Indication: Myocardial ischaemia
  4. DILTIAZEM HYDROCHLORIDE [Suspect]
     Active Substance: DILTIAZEM HYDROCHLORIDE
     Indication: Suicide attempt
     Dosage: UNK
     Route: 048
  5. DILTIAZEM HYDROCHLORIDE [Suspect]
     Active Substance: DILTIAZEM HYDROCHLORIDE
     Indication: Hypertension
     Dosage: 60 MG-96 DF,1X.
     Route: 048
  6. DILTIAZEM HYDROCHLORIDE [Suspect]
     Active Substance: DILTIAZEM HYDROCHLORIDE
     Indication: Myocardial ischaemia

REACTIONS (6)
  - Cardiovascular insufficiency [Recovering/Resolving]
  - Intentional overdose [Recovering/Resolving]
  - Suicide attempt [Unknown]
  - Metabolic acidosis [Recovering/Resolving]
  - Hyperglycaemia [Recovering/Resolving]
  - Atrioventricular block second degree [Recovering/Resolving]
